FAERS Safety Report 23244102 (Version 3)
Quarter: 2024Q3

REPORT INFORMATION
  Report Type: Spontaneous
  Country: IN (occurrence: IN)
  Receive Date: 20231130
  Receipt Date: 20240703
  Transmission Date: 20241017
  Serious: Yes (Hospitalization, Other)
  Sender: SANDOZ
  Company Number: IN-002147023-NVSC2023IN252012

PATIENT
  Age: 60 Year
  Sex: Male

DRUGS (4)
  1. MYFORTIC [Suspect]
     Active Substance: MYCOPHENOLATE SODIUM
     Indication: Product used for unknown indication
     Dosage: 360 MG, BID
     Route: 048
  2. TACROLIMUS [Suspect]
     Active Substance: TACROLIMUS
     Dosage: 2.5 MG, QD
     Route: 065
  3. TACROLIMUS [Suspect]
     Active Substance: TACROLIMUS
     Indication: Renal transplant
     Dosage: 2 MG, BID
     Route: 048
  4. TACROLIMUS [Suspect]
     Active Substance: TACROLIMUS
     Dosage: 1 MG (M), 1.5MG (N)
     Route: 048

REACTIONS (18)
  - Gangrene [Unknown]
  - Body mass index increased [Unknown]
  - Glomerular filtration rate increased [Unknown]
  - Body surface area increased [Unknown]
  - Breath sounds abnormal [Unknown]
  - Blood urea increased [Unknown]
  - Haematocrit increased [Unknown]
  - Blood phosphorus decreased [Unknown]
  - C-reactive protein increased [Unknown]
  - Blood sodium decreased [Unknown]
  - Incorrect dose administered [Unknown]
  - Blood pressure increased [Unknown]
  - Cellulitis [Unknown]
  - Hypoalbuminaemia [Unknown]
  - Ulcer [Unknown]
  - Fibrosis [Unknown]
  - Arteriosclerosis [Unknown]
  - Electrolyte imbalance [Unknown]

NARRATIVE: CASE EVENT DATE: 20230329
